FAERS Safety Report 15884833 (Version 1)
Quarter: 2019Q1

REPORT INFORMATION
  Report Type: Spontaneous
  Country: JP (occurrence: JP)
  Receive Date: 20190129
  Receipt Date: 20190129
  Transmission Date: 20190417
  Serious: Yes (Other)
  Sender: FDA-Public Use
  Company Number: JP-BAYER-2018-210706

PATIENT
  Age: 62 Year
  Sex: Male

DRUGS (10)
  1. XOFIGO [Suspect]
     Active Substance: RADIUM RA-223 DICHLORIDE
     Indication: HORMONE-REFRACTORY PROSTATE CANCER
     Dosage: UNK, ONCE
     Route: 042
     Dates: start: 20181023, end: 20181023
  2. NOVAMIN [AMIKACIN SULFATE] [Concomitant]
  3. HEPARIN [Concomitant]
     Active Substance: HEPARIN SODIUM
     Dosage: UNK
  4. CYMBALTA [Concomitant]
     Active Substance: DULOXETINE HYDROCHLORIDE
  5. XOFIGO [Suspect]
     Active Substance: RADIUM RA-223 DICHLORIDE
     Indication: METASTASES TO BONE
  6. OXINORM [ASCORBIC ACID;BETACAROTENE;COPPER;GLYCINE MAX EXTRACT;SEL [Concomitant]
  7. AMLODIPINE [Concomitant]
     Active Substance: AMLODIPINE BESYLATE
  8. OXYCONTIN [Concomitant]
     Active Substance: OXYCODONE HYDROCHLORIDE
  9. BETANIS [Concomitant]
     Active Substance: MIRABEGRON
  10. LOXOPROFEN [Concomitant]
     Active Substance: LOXOPROFEN

REACTIONS (3)
  - Pancytopenia [Recovering/Resolving]
  - Pleural effusion [Recovering/Resolving]
  - Prostate cancer [None]

NARRATIVE: CASE EVENT DATE: 20181107
